FAERS Safety Report 15329681 (Version 1)
Quarter: 2018Q3

REPORT INFORMATION
  Report Type: Spontaneous
  Country: US (occurrence: US)
  Receive Date: 20180823
  Receipt Date: 20180823
  Transmission Date: 20181010
  Serious: Yes (Hospitalization)
  Sender: FDA-Public Use
  Company Number: None

PATIENT
  Age: 69 Year
  Sex: Female

DRUGS (1)
  1. TACROLIMUS CAP 1 MG DR. REDDY^S [Suspect]
     Active Substance: TACROLIMUS
     Indication: LIVER TRANSPLANT
     Route: 048
     Dates: start: 20110402

REACTIONS (3)
  - Nausea [None]
  - Sepsis [None]
  - Vomiting [None]

NARRATIVE: CASE EVENT DATE: 20180803
